FAERS Safety Report 5082136-8 (Version None)
Quarter: 2006Q3

REPORT INFORMATION
  Report Type: 
  Country: None (occurrence: None)
  Receive Date: 20060817
  Receipt Date: 20060810
  Transmission Date: 20061208
  Serious: Yes (Other)
  Sender: FDA-Public Use
  Company Number: US-JNJFOC-20060803012

PATIENT
  Sex: Female

DRUGS (4)
  1. FLEXERIL [Suspect]
     Indication: DRUG USE FOR UNKNOWN INDICATION
  2. ARAVA [Suspect]
  3. ARAVA [Suspect]
     Indication: RHEUMATOID ARTHRITIS
  4. ENBREL [Concomitant]

REACTIONS (1)
  - HEPATIC FAILURE [None]
